FAERS Safety Report 8836488 (Version 2)
Quarter: 2012Q4

REPORT INFORMATION
  Report Type: 
  Country: AU (occurrence: AU)
  Receive Date: 20121011
  Receipt Date: 20121019
  Transmission Date: 20130627
  Serious: Yes (Other)
  Sender: FDA-Public Use
  Company Number: AU-ELI_LILLY_AND_COMPANY-AU201210001639

PATIENT
  Sex: Male

DRUGS (2)
  1. EFFIENT [Suspect]
     Indication: MYOCARDIAL INFARCTION
     Dosage: 10 mg, qd
     Route: 065
     Dates: end: 20120929
  2. EFFIENT [Suspect]
     Dosage: UNK
     Dates: start: 20121001

REACTIONS (2)
  - Thrombosis in device [Unknown]
  - Left ventricular dysfunction [Unknown]
